FAERS Safety Report 5394682-8 (Version None)
Quarter: 2007Q3

REPORT INFORMATION
  Report Type: 
  Country: None (occurrence: None)
  Receive Date: 20070723
  Receipt Date: 20070716
  Transmission Date: 20080115
  Serious: Yes (Other)
  Sender: FDA-Public Use
  Company Number: US-PFIZER INC-2007058312

PATIENT
  Sex: Female
  Weight: 63.5 kg

DRUGS (9)
  1. XANAX [Suspect]
     Indication: ANXIETY
  2. XANAX [Suspect]
     Indication: ADRENAL DISORDER
  3. METOPROLOL SUCCINATE [Concomitant]
  4. NEURONTIN [Concomitant]
  5. TOPAMAX [Concomitant]
  6. LOTREL [Concomitant]
  7. ZETIA [Concomitant]
  8. RANITIDINE HYDROCHLORIDE [Concomitant]
  9. ANALGESICS [Concomitant]

REACTIONS (6)
  - DRUG LEVEL ABOVE THERAPEUTIC [None]
  - HERPES ZOSTER [None]
  - HYPOTENSION [None]
  - LOSS OF CONSCIOUSNESS [None]
  - PITUITARY-DEPENDENT CUSHING'S SYNDROME [None]
  - ROAD TRAFFIC ACCIDENT [None]
